FAERS Safety Report 5189858-9 (Version None)
Quarter: 2006Q4

REPORT INFORMATION
  Report Type: 
  Country: None (occurrence: None)
  Receive Date: 20061218
  Receipt Date: 20061211
  Transmission Date: 20070319
  Serious: Yes (Death, Congenital Anomaly)
  Sender: FDA-Public Use
  Company Number: 144286USA

PATIENT
  Sex: Female

DRUGS (8)
  1. COPAXONE [Suspect]
     Indication: MULTIPLE SCLEROSIS
     Dosage: (20 MG), SUBCUTANEOUS
     Route: 058
     Dates: start: 20030716, end: 20050901
  2. COPAXONE [Suspect]
     Indication: MULTIPLE SCLEROSIS
     Dosage: (20 MG), SUBCUTANEOUS
     Route: 058
     Dates: start: 20060724
  3. PRENATAL VITAMINS [Concomitant]
  4. ACETAMINOPHEN [Concomitant]
  5. FLUOXETINE HYDROCHLORIDE [Concomitant]
  6. PROMETHAZINE [Concomitant]
  7. TYLENOL [Concomitant]
  8. VICODIN [Concomitant]

REACTIONS (4)
  - CONGENITAL CENTRAL NERVOUS SYSTEM ANOMALY [None]
  - DRUG EXPOSURE DURING PREGNANCY [None]
  - HYDROCEPHALUS [None]
  - INFLUENZA LIKE ILLNESS [None]
